FAERS Safety Report 4960586-5 (Version None)
Quarter: 2006Q2

REPORT INFORMATION
  Report Type: 
  Country: None (occurrence: None)
  Receive Date: 20060403
  Receipt Date: 20050511
  Transmission Date: 20061013
  Serious: Yes (Hospitalization, Disabling)
  Sender: FDA-Public Use
  Company Number: US-MERCK-0505USA01502

PATIENT
  Age: 48 Year
  Sex: Female
  Weight: 90 kg

DRUGS (9)
  1. VIOXX [Suspect]
     Indication: BACK PAIN
     Route: 048
     Dates: start: 20000130, end: 20010710
  2. XANAX [Concomitant]
     Route: 065
  3. ECOTRIN [Concomitant]
     Route: 065
  4. TENORMIN [Concomitant]
     Indication: HYPERTENSION
     Route: 065
  5. ALTACE [Concomitant]
     Route: 065
     Dates: start: 19980101
  6. PLAVIX [Concomitant]
     Indication: ANTICOAGULANT THERAPY
     Route: 065
  7. TOPROL-XL [Concomitant]
     Route: 065
     Dates: start: 20010101
  8. CLIMARA [Concomitant]
     Indication: HORMONE REPLACEMENT THERAPY
     Route: 065
     Dates: start: 19970101
  9. OXYCONTIN [Concomitant]
     Route: 065
     Dates: start: 20000101

REACTIONS (13)
  - ABDOMINAL DISCOMFORT [None]
  - ADVERSE EVENT [None]
  - AMNESIA [None]
  - ANIMAL BITE [None]
  - ARTERIOSCLEROSIS [None]
  - BLOOD CHOLESTEROL INCREASED [None]
  - BRONCHITIS [None]
  - CORONARY ARTERY DISEASE [None]
  - DEPRESSION [None]
  - MYOCARDIAL INFARCTION [None]
  - ROAD TRAFFIC ACCIDENT [None]
  - TRANSIENT ISCHAEMIC ATTACK [None]
  - VERTIGO [None]
